FAERS Safety Report 7246160-9 (Version None)
Quarter: 2011Q1

REPORT INFORMATION
  Report Type: 
  Country: None (occurrence: None)
  Receive Date: 20110126
  Receipt Date: 20110119
  Transmission Date: 20110831
  Serious: Yes (Other)
  Sender: FDA-Public Use
  Company Number: A0908791A

PATIENT
  Age: 12 Year
  Sex: Male

DRUGS (1)
  1. PAXIL [Suspect]
     Route: 048
     Dates: start: 19980801, end: 20010201

REACTIONS (3)
  - HALLUCINATION [None]
  - IMPULSIVE BEHAVIOUR [None]
  - DRUG WITHDRAWAL SYNDROME [None]
